FAERS Safety Report 5290238-6 (Version None)
Quarter: 2007Q2

REPORT INFORMATION
  Report Type: 
  Country: None (occurrence: None)
  Receive Date: 20070402
  Receipt Date: 20070315
  Transmission Date: 20071010
  Serious: Yes (Hospitalization, Other)
  Sender: FDA-Public Use
  Company Number: 8014488

PATIENT
  Age: 27 Year
  Sex: Female

DRUGS (6)
  1. KEPPRA [Suspect]
     Indication: CONVULSION
     Dosage: 1750 MG /D PO
     Route: 048
     Dates: start: 20030909
  2. GABAPENTIN [Concomitant]
  3. PRENATAL VITAMINS [Concomitant]
  4. FOLIC ACID [Concomitant]
  5. PROZAC [Concomitant]
  6. ZOFRAN [Concomitant]

REACTIONS (7)
  - COMPLEX PARTIAL SEIZURES [None]
  - DRUG EXPOSURE DURING PREGNANCY [None]
  - GRAND MAL CONVULSION [None]
  - OVARIAN CYST [None]
  - OVARIAN MASS [None]
  - PREGNANCY [None]
  - SIMPLE PARTIAL SEIZURES [None]
